FAERS Safety Report 8236504-3 (Version None)
Quarter: 2012Q1

REPORT INFORMATION
  Report Type: 
  Country: None (occurrence: None)
  Receive Date: 20120327
  Receipt Date: 20120321
  Transmission Date: 20120608
  Serious: Yes (Death)
  Sender: FDA-Public Use
  Company Number: JP-ASTELLAS-2012JP002546

PATIENT
  Age: 58 Year
  Sex: Male

DRUGS (4)
  1. FLUDARABINE PHOSPHATE [Concomitant]
     Route: 065
  2. METHOTREXATE [Concomitant]
     Indication: PROPHYLAXIS AGAINST GRAFT VERSUS HOST DISEASE
     Route: 065
  3. MELPHALAN HYDROCHLORIDE [Concomitant]
     Route: 065
  4. PROGRAF [Suspect]
     Indication: PROPHYLAXIS AGAINST GRAFT VERSUS HOST DISEASE
     Route: 065

REACTIONS (1)
  - PNEUMONIA FUNGAL [None]
